FAERS Safety Report 14675852 (Version 4)
Quarter: 2018Q2

REPORT INFORMATION
  Report Type: Spontaneous
  Country: JP (occurrence: JP)
  Receive Date: 20180323
  Receipt Date: 20180627
  Transmission Date: 20180711
  Serious: Yes (Other)
  Sender: FDA-Public Use
  Company Number: JP-JNJFOC-20180329958

PATIENT
  Age: 73 Year
  Sex: Female
  Weight: 47.3 kg

DRUGS (8)
  1. FUROSEMIDE. [Concomitant]
     Active Substance: FUROSEMIDE
     Indication: OEDEMA
     Route: 048
  2. ATORVASTATIN CALCIUM. [Concomitant]
     Active Substance: ATORVASTATIN CALCIUM
     Indication: DYSLIPIDAEMIA
     Route: 048
     Dates: end: 2018
  3. TASMOLIN [Concomitant]
     Active Substance: BIPERIDEN
     Indication: PARKINSONISM
     Route: 048
  4. LACTOMIN [Concomitant]
     Active Substance: LACTOBACILLUS ACIDOPHILUS
     Indication: CONSTIPATION
     Route: 048
  5. REBAMIPIDE [Concomitant]
     Active Substance: REBAMIPIDE
     Indication: CHRONIC GASTRITIS
     Route: 048
  6. INVEGA [Suspect]
     Active Substance: PALIPERIDONE
     Indication: SCHIZOPHRENIA
     Route: 048
     Dates: start: 20180309
  7. MAGNESIUM OXIDE. [Concomitant]
     Active Substance: MAGNESIUM OXIDE
     Indication: CONSTIPATION
     Route: 048
  8. CAMOSTAT MESILATE [Concomitant]
     Active Substance: CAMOSTAT MESYLATE
     Indication: HYPERAMYLASAEMIA
     Route: 048
     Dates: start: 201711

REACTIONS (1)
  - Hyperamylasaemia [Recovering/Resolving]

NARRATIVE: CASE EVENT DATE: 20180317
